FAERS Safety Report 9053846 (Version 1)
Quarter: 2013Q1

REPORT INFORMATION
  Report Type: Spontaneous
  Country: US (occurrence: None)
  Receive Date: 20130117
  Receipt Date: 20130117
  Transmission Date: 20140127
  Serious: Yes (Hospitalization)
  Sender: FDA-Public Use
  Company Number: JPI-P-027931

PATIENT
  Age: 28 Year
  Sex: Male

DRUGS (10)
  1. XYREM(500 MILLIGRAM/MILLILITERS, SOLUTION)(SODIUM OXYBATE) [Suspect]
     Indication: CATAPLEXY
     Dosage: 4 GM, 2 IN 1 D)
     Route: 048
     Dates: start: 20061205
  2. BUDESONIDE [Concomitant]
  3. CALCIUM [Concomitant]
  4. CLONAZEPAM [Concomitant]
  5. ESCITALOPRAM OXALATE [Concomitant]
  6. IPRATROPIUM BROMIDE [Concomitant]
  7. LANSOPRAZOLE [Concomitant]
  8. LEVETIRACETAM [Concomitant]
  9. MONTELUKAST SODIUM [Concomitant]
  10. CLONIDINE [Concomitant]

REACTIONS (1)
  - Gastroenteritis [None]
